FAERS Safety Report 19088204 (Version 1)
Quarter: 2021Q2

REPORT INFORMATION
  Report Type: Spontaneous
  Country: FR (occurrence: FR)
  Receive Date: 20210402
  Receipt Date: 20210402
  Transmission Date: 20210717
  Serious: Yes (Other)
  Sender: FDA-Public Use
  Company Number: FR-PFIZER INC-2021311220

PATIENT
  Age: 33 Year
  Sex: Female

DRUGS (4)
  1. DOXORUBICIN HCL [Suspect]
     Active Substance: DOXORUBICIN HYDROCHLORIDE
     Indication: HODGKIN^S DISEASE
     Dosage: 1 UNK EVERY 15 DAYS
     Route: 041
     Dates: start: 202101, end: 202103
  2. DACARBAZINE. [Suspect]
     Active Substance: DACARBAZINE
     Indication: HODGKIN^S DISEASE
     Dosage: 1 UNK EVERY 15 DAYS
     Route: 041
     Dates: start: 202101, end: 202103
  3. BLEOMYCINE [BLEOMYCIN SULFATE] [Suspect]
     Active Substance: BLEOMYCIN SULFATE
     Indication: HODGKIN^S DISEASE
     Dosage: 1 UNK EVERY 15 DAYS
     Route: 041
     Dates: start: 202101, end: 202103
  4. VINBLASTINE SULFATE. [Suspect]
     Active Substance: VINBLASTINE SULFATE
     Indication: HODGKIN^S DISEASE
     Dosage: 1 UNK EVERY 15 DAYS
     Route: 041
     Dates: start: 202101, end: 202103

REACTIONS (1)
  - Tinnitus [Not Recovered/Not Resolved]

NARRATIVE: CASE EVENT DATE: 202102
